FAERS Safety Report 9996225 (Version 2)
Quarter: 2014Q1

REPORT INFORMATION
  Report Type: Spontaneous
  Country: SE (occurrence: SE)
  Receive Date: 20140311
  Receipt Date: 20140311
  Transmission Date: 20141002
  Serious: Yes (Hospitalization)
  Sender: FDA-Public Use
  Company Number: SE-SA-2014SA006449

PATIENT
  Age: 93 Year
  Sex: Female

DRUGS (15)
  1. LASIX RETARD [Suspect]
     Indication: PRODUCT USED FOR UNKNOWN INDICATION
     Route: 048
     Dates: end: 201311
  2. DIGOXIN [Suspect]
     Indication: PRODUCT USED FOR UNKNOWN INDICATION
     Route: 048
  3. DIGOXIN [Suspect]
     Indication: PRODUCT USED FOR UNKNOWN INDICATION
     Route: 048
  4. NORMORIX MITE [Suspect]
     Indication: PRODUCT USED FOR UNKNOWN INDICATION
     Dosage: 5MG/50MG
     Route: 048
  5. ENALAPRIL [Suspect]
     Indication: PRODUCT USED FOR UNKNOWN INDICATION
     Route: 048
     Dates: end: 201311
  6. OXYNORM [Concomitant]
     Dosage: STRENGTH 10 MG
     Route: 048
  7. TIMOSAN [Concomitant]
     Dosage: DEPOT EYE DROPS?STRENGTH: 1 MG/ML
  8. XALATAN [Concomitant]
     Dosage: STRENGTH: 50 MCG/ML
  9. XARELTO [Concomitant]
     Dosage: STRENGTH: 20 MG
  10. PANODIL [Concomitant]
     Dosage: STRENGTH: 500 MG
  11. ALLOPURINOL [Concomitant]
  12. ARTELAC [Concomitant]
  13. LEVAXIN [Concomitant]
     Dosage: STRENGTH: 75 MCG
  14. METOPROLOL [Concomitant]
  15. MOVICOL [Concomitant]

REACTIONS (2)
  - Toxicity to various agents [Recovering/Resolving]
  - Prerenal failure [Recovering/Resolving]
